FAERS Safety Report 24366416 (Version 1)
Quarter: 2024Q3

REPORT INFORMATION
  Report Type: Spontaneous
  Country: JP (occurrence: JP)
  Receive Date: 20240926
  Receipt Date: 20240926
  Transmission Date: 20241016
  Serious: Yes (Other)
  Sender: CSL BEHRING
  Company Number: JP-BEH-2024179210

PATIENT
  Age: 71 Year
  Sex: Male

DRUGS (1)
  1. PRIVIGEN [Suspect]
     Active Substance: HUMAN IMMUNOGLOBULIN G
     Indication: Chronic inflammatory demyelinating polyradiculoneuropathy
     Dosage: UNK
     Route: 042

REACTIONS (5)
  - Dermatitis exfoliative generalised [Unknown]
  - Aseptic pustule [Unknown]
  - Pyrexia [Unknown]
  - Rash [Unknown]
  - Pruritus [Unknown]
